FAERS Safety Report 15083155 (Version 1)
Quarter: 2018Q2

REPORT INFORMATION
  Report Type: Spontaneous
  Country: US (occurrence: US)
  Receive Date: 20180628
  Receipt Date: 20180628
  Transmission Date: 20180711
  Serious: No
  Sender: FDA-Public Use
  Company Number: US-FRESENIUS MEDICAL CARE RENAL THERAPIES GROUP-FMC-1806-001107

PATIENT
  Sex: Female
  Weight: 71 kg

DRUGS (5)
  1. VENOFER [Concomitant]
     Active Substance: IRON SUCROSE
  2. FUROSEMIDE. [Concomitant]
     Active Substance: FUROSEMIDE
  3. DELFLEX [Suspect]
     Active Substance: CALCIUM CHLORIDE\DEXTROSE\MAGNESIUM CHLORIDE\SODIUM CHLORIDE\SODIUM LACTATE
     Indication: END STAGE RENAL DISEASE
     Dosage: 3 EXCHANGES OF 2000 ML AND A FINAL FILL OF 2000 ML
     Route: 033
     Dates: start: 20180603
  4. FERRITIN [Concomitant]
     Active Substance: FERRITIN
  5. LANTUS [Concomitant]
     Active Substance: INSULIN GLARGINE

REACTIONS (4)
  - Oedema [Recovered/Resolved]
  - Fluid imbalance [Recovered/Resolved]
  - Abdominal discomfort [Recovered/Resolved]
  - Dyspnoea [Recovered/Resolved]
